FAERS Safety Report 7858769-X (Version None)
Quarter: 2011Q4

REPORT INFORMATION
  Report Type: 
  Country: None (occurrence: None)
  Receive Date: 20111027
  Receipt Date: 20111023
  Transmission Date: 20120403
  Serious: Yes (Other)
  Sender: FDA-Public Use
  Company Number: CN-BRACCO-000239

PATIENT
  Age: 55 Year
  Sex: Female

DRUGS (1)
  1. IOPAMIDOL [Suspect]
     Indication: ARTERIOGRAM CORONARY
     Dates: start: 20091210, end: 20091210

REACTIONS (1)
  - EPILEPSY [None]
